FAERS Safety Report 4383351-9 (Version None)
Quarter: 2004Q2

REPORT INFORMATION
  Report Type: 
  Country: None (occurrence: None)
  Receive Date: 20040618
  Receipt Date: 20040601
  Transmission Date: 20050107
  Serious: Yes (Other)
  Sender: FDA-Public Use
  Company Number: 2004207282JP

PATIENT
  Age: 66 Year
  Sex: Male

DRUGS (1)
  1. CAMPTOSAR [Suspect]
     Indication: LUNG NEOPLASM MALIGNANT
     Dosage: 100 MG/M2, CYCLIC, IV DRIP
     Route: 041
     Dates: start: 20040128, end: 20040317

REACTIONS (1)
  - INTERSTITIAL LUNG DISEASE [None]
